FAERS Safety Report 4971230-5 (Version None)
Quarter: 2006Q2

REPORT INFORMATION
  Report Type: 
  Country: None (occurrence: None)
  Receive Date: 20060413
  Receipt Date: 20051025
  Transmission Date: 20061013
  Serious: Yes (Hospitalization)
  Sender: FDA-Public Use
  Company Number: US-MERCK-0510USA09274

PATIENT
  Age: 55 Year
  Sex: Male
  Weight: 102 kg

DRUGS (1)
  1. VIOXX [Suspect]
     Indication: PAIN
     Route: 048
     Dates: start: 20010413, end: 20041001

REACTIONS (15)
  - ACUTE CORONARY SYNDROME [None]
  - BACK PAIN [None]
  - CHEST PAIN [None]
  - CORONARY ARTERY DISEASE [None]
  - CORONARY ARTERY THROMBOSIS [None]
  - DYSLIPIDAEMIA [None]
  - HAEMANGIOMA [None]
  - INTERVERTEBRAL DISC PROTRUSION [None]
  - LIPIDS ABNORMAL [None]
  - MYOCARDIAL INFARCTION [None]
  - NOCTURIA [None]
  - OBESITY [None]
  - RADICULITIS LUMBOSACRAL [None]
  - RENAL CYST [None]
  - UPPER RESPIRATORY TRACT INFECTION [None]
